FAERS Safety Report 21442422 (Version 1)
Quarter: 2022Q4

REPORT INFORMATION
  Report Type: Spontaneous
  Country: US (occurrence: None)
  Receive Date: 20221010
  Receipt Date: 20221010
  Transmission Date: 20230112
  Serious: No
  Sender: FDA-Public Use
  Company Number: None

PATIENT

DRUGS (1)
  1. FORTEO [Suspect]
     Active Substance: TERIPARATIDE
     Indication: Senile osteoporosis
     Dosage: OTHER STRENGTH : 60MCG/2.4ML;?FREQUENCY : DAILY;?
     Route: 058
     Dates: start: 202111

REACTIONS (3)
  - Fall [None]
  - Head injury [None]
  - Headache [None]
